FAERS Safety Report 23841567 (Version 1)
Quarter: 2024Q2

REPORT INFORMATION
  Report Type: Spontaneous
  Country: AT (occurrence: AT)
  Receive Date: 20240510
  Receipt Date: 20240510
  Transmission Date: 20240715
  Serious: Yes (Other)
  Sender: FDA-Public Use
  Company Number: None

PATIENT
  Age: 79 Year
  Sex: Female

DRUGS (2)
  1. ELIQUIS [Suspect]
     Active Substance: APIXABAN
     Indication: Product used for unknown indication
     Dates: start: 202311, end: 202311
  2. ELIQUIS [Suspect]
     Active Substance: APIXABAN
     Dates: start: 202311, end: 202401

REACTIONS (8)
  - Decubitus ulcer [Recovering/Resolving]
  - Haematoma [Unknown]
  - Anaemia [Unknown]
  - Haemorrhage [Unknown]
  - Vaginal haemorrhage [Recovered/Resolved]
  - Wound necrosis [Not Recovered/Not Resolved]
  - Anal haemorrhage [Recovered/Resolved]
  - Impaired healing [Not Recovered/Not Resolved]

NARRATIVE: CASE EVENT DATE: 20231101
